FAERS Safety Report 8416318-1 (Version None)
Quarter: 2012Q2

REPORT INFORMATION
  Report Type: 
  Country: None (occurrence: None)
  Receive Date: 20120323
  Receipt Date: 20110805
  Transmission Date: 20120825
  Serious: Yes (Hospitalization)
  Sender: FDA-Public Use
  Company Number: 163-21880-11080876

PATIENT
  Age: 62 Year
  Sex: Male

DRUGS (16)
  1. BUMEX [Concomitant]
  2. SYNTHROID [Concomitant]
  3. SENAKOT (SENNA) [Concomitant]
  4. ACYCLOVIR [Concomitant]
  5. IMDUR [Concomitant]
  6. POTASSIUM CHLORIDE [Concomitant]
  7. AMBIEN [Concomitant]
  8. ZETIA [Concomitant]
  9. ZOCOR [Concomitant]
  10. FLOMAX [Concomitant]
  11. WARFARIN SODIUM [Concomitant]
  12. LOPRESSOR [Concomitant]
  13. REVLIMID [Suspect]
     Indication: MULTIPLE MYELOMA
     Dosage: 10 MG, 1 IN 1 D, PO
     Route: 048
     Dates: start: 20080701
  14. MORPHINE [Concomitant]
  15. PRILOSEC [Concomitant]
  16. COMPAZINE [Concomitant]

REACTIONS (2)
  - SYNCOPE [None]
  - ANAEMIA [None]
